FAERS Safety Report 8319553-6 (Version None)
Quarter: 2012Q2

REPORT INFORMATION
  Report Type: 
  Country: None (occurrence: None)
  Receive Date: 20120427
  Receipt Date: 20120418
  Transmission Date: 20120825
  Serious: Yes (Hospitalization)
  Sender: FDA-Public Use
  Company Number: PHHY2012JP033648

PATIENT
  Sex: Female

DRUGS (2)
  1. NEORAL [Suspect]
     Indication: LIVER TRANSPLANT
     Dosage: 100 MG, UNK
     Route: 048
  2. MYCOPHENOLATE MOFETIL (CELLCEPT) [Concomitant]
     Dosage: 1500 MG, UNK
     Route: 048

REACTIONS (1)
  - ASTHMA [None]
